FAERS Safety Report 5317223-X (Version None)
Quarter: 2007Q2

REPORT INFORMATION
  Report Type: 
  Country: None (occurrence: None)
  Receive Date: 20070504
  Receipt Date: 20070423
  Transmission Date: 20071010
  Serious: Yes (Hospitalization)
  Sender: FDA-Public Use
  Company Number: SE-PFIZER INC-2007032608

PATIENT
  Sex: Female
  Weight: 63 kg

DRUGS (20)
  1. SU-011,248 [Suspect]
     Indication: GASTROINTESTINAL STROMAL TUMOUR
     Route: 048
     Dates: start: 20060216, end: 20070421
  2. POTASSIUM CHLORIDE [Concomitant]
     Route: 048
  3. FUROSEMIDE [Concomitant]
     Route: 048
  4. LEVAXIN [Concomitant]
     Route: 048
  5. ZYPREXA [Concomitant]
     Route: 048
  6. ZOLPIDEM TARTRATE [Concomitant]
  7. PROPAVAN [Concomitant]
     Route: 048
  8. LACTULOSE [Concomitant]
     Route: 048
  9. TAVEGYL [Concomitant]
     Route: 048
  10. EMOLLIENTS AND PROTECTIVES [Concomitant]
     Route: 048
  11. XYLOCAIN [Concomitant]
     Route: 048
  12. BETOLVEX [Concomitant]
     Route: 048
  13. PANTOPRAZOLE SODIUM [Concomitant]
     Route: 048
  14. FOLACIN [Concomitant]
     Route: 048
  15. ZINCFRIN [Concomitant]
     Route: 048
  16. TIPAROL [Concomitant]
     Route: 048
  17. ZINACEF [Concomitant]
     Route: 042
  18. ACETAMINOPHEN [Concomitant]
     Route: 054
  19. KETOGAN [Concomitant]
  20. COMBIVENT [Concomitant]

REACTIONS (1)
  - PNEUMONIA [None]
